FAERS Safety Report 6575999-8 (Version None)
Quarter: 2010Q1

REPORT INFORMATION
  Report Type: 
  Country: None (occurrence: None)
  Receive Date: 20100209
  Receipt Date: 20100203
  Transmission Date: 20100710
  Serious: Yes (Life-Threatening)
  Sender: FDA-Public Use
  Company Number: IT-CELGENEUS-083-20785-09110740

PATIENT
  Sex: Female

DRUGS (3)
  1. THALIDOMIDE [Suspect]
     Indication: MULTIPLE MYELOMA
     Route: 048
     Dates: start: 20090811
  2. THALIDOMIDE [Suspect]
     Route: 048
  3. BI-EUGLUCON [Suspect]
     Indication: DIABETES MELLITUS
     Route: 065

REACTIONS (1)
  - CONSTIPATION [None]
